FAERS Safety Report 7208238-5 (Version None)
Quarter: 2011Q1

REPORT INFORMATION
  Report Type: 
  Country: None (occurrence: None)
  Receive Date: 20110104
  Receipt Date: 20101224
  Transmission Date: 20110831
  Serious: Yes (Hospitalization)
  Sender: FDA-Public Use
  Company Number: JP-BRISTOL-MYERS SQUIBB COMPANY-15463425

PATIENT

DRUGS (4)
  1. LASTET INJ [Suspect]
     Indication: HEPATOBLASTOMA
     Dosage: INJ
     Route: 041
  2. PARAPLATIN [Suspect]
     Indication: HEPATOBLASTOMA
     Route: 041
  3. PIRARUBICIN [Suspect]
     Indication: HEPATOBLASTOMA
     Dosage: INJ
     Route: 042
  4. IFOMIDE [Suspect]
     Indication: HEPATOBLASTOMA
     Dosage: INJ
     Route: 042

REACTIONS (1)
  - CYSTITIS HAEMORRHAGIC [None]
